FAERS Safety Report 7301115-0 (Version None)
Quarter: 2011Q1

REPORT INFORMATION
  Report Type: 
  Country: None (occurrence: None)
  Receive Date: 20110218
  Receipt Date: 20110214
  Transmission Date: 20110831
  Serious: Yes (Other)
  Sender: FDA-Public Use
  Company Number: NO-BRISTOL-MYERS SQUIBB COMPANY-15554751

PATIENT
  Age: 28 Year
  Sex: Female

DRUGS (1)
  1. ABILIFY [Suspect]

REACTIONS (11)
  - SUICIDAL IDEATION [None]
  - SALIVARY HYPERSECRETION [None]
  - METABOLIC DISORDER [None]
  - PHOTOPHOBIA [None]
  - LIVER FUNCTION TEST ABNORMAL [None]
  - AGGRESSION [None]
  - WEIGHT INCREASED [None]
  - MYALGIA [None]
  - SELF-INJURIOUS IDEATION [None]
  - NAUSEA [None]
  - DIARRHOEA [None]
